FAERS Safety Report 8861301 (Version 2)
Quarter: 2012Q4

REPORT INFORMATION
  Report Type: 
  Country: US (occurrence: US)
  Receive Date: 20121026
  Receipt Date: 20121121
  Transmission Date: 20130627
  Serious: No
  Sender: FDA-Public Use
  Company Number: US-PFIZER INC-2012262285

PATIENT
  Sex: Female

DRUGS (1)
  1. ESTRING [Suspect]
     Dosage: UNK
     Route: 067
     Dates: start: 201210, end: 2012

REACTIONS (2)
  - Headache [Not Recovered/Not Resolved]
  - Sinus disorder [Unknown]
